FAERS Safety Report 6429233-X (Version None)
Quarter: 2009Q4

REPORT INFORMATION
  Report Type: 
  Country: None (occurrence: None)
  Receive Date: 20091105
  Receipt Date: 20091023
  Transmission Date: 20100525
  Serious: Yes (Other)
  Sender: FDA-Public Use
  Company Number: PHHY2009DE46176

PATIENT
  Sex: Female
  Weight: 89 kg

DRUGS (5)
  1. ZOMETA [Suspect]
     Indication: BONE DISORDER
     Dosage: 4 MG,EVERY 4 WEEKS
     Route: 042
     Dates: start: 20080721
  2. METOPROLOL SUCCINATE [Concomitant]
     Dosage: 47.5 MG, UNK
     Dates: start: 20080701
  3. ASPIRIN [Concomitant]
     Dosage: 100 MG, UNK
     Dates: start: 20080701
  4. ENOXAPARIN SODIUM [Concomitant]
     Dosage: 0.7 ML, UNK
     Dates: start: 20080701
  5. CAELYX [Concomitant]
     Dosage: 40 MG/M2, UNK
     Dates: start: 20081024

REACTIONS (4)
  - FEMUR FRACTURE [None]
  - MALIGNANT NEOPLASM PROGRESSION [None]
  - METASTASES TO BONE [None]
  - METASTASES TO LIVER [None]
